FAERS Safety Report 4346226-7 (Version None)
Quarter: 2004Q2

REPORT INFORMATION
  Report Type: 
  Country: None (occurrence: None)
  Receive Date: 20040416
  Receipt Date: 20040402
  Transmission Date: 20050107
  Serious: Yes (Hospitalization, Other)
  Sender: FDA-Public Use
  Company Number: 2004-114658-NL

PATIENT
  Age: 81 Year
  Sex: Male
  Weight: 75 kg

DRUGS (12)
  1. TICE BCG [Suspect]
     Indication: BLADDER CANCER
     Dosage: CFU INTRAVESICAL, FULL DOSE
     Route: 043
     Dates: start: 20020814, end: 20020918
  2. TICE BCG [Suspect]
     Indication: BLADDER CANCER
     Dosage: CFU INTRAVESICAL, 1/3 DOSE
     Route: 043
     Dates: start: 20021120, end: 20021204
  3. TICE BCG [Suspect]
     Indication: BLADDER CANCER
     Dosage: CFU INTRAVESICAL, 1/3 DOSE
     Route: 043
     Dates: start: 20030212, end: 20030226
  4. TICE BCG [Suspect]
     Indication: BLADDER CANCER
     Dosage: CFU INTRAVESICAL, 1/3 DOSE
     Route: 043
     Dates: start: 20031001, end: 20031015
  5. INTRON A [Concomitant]
     Indication: BLADDER CANCER
     Dosage: 50 IU WEEKLY INTRAVESICAL
     Route: 043
     Dates: start: 20020814, end: 20020918
  6. INTRON A [Suspect]
     Indication: BLADDER CANCER
     Dosage: 50 IU WEEKLY INTRAVESICAL, 3 WEEKS
     Route: 043
     Dates: start: 20021120, end: 20021204
  7. INTRON A [Suspect]
     Indication: BLADDER CANCER
     Dosage: 50 IU WEEKLY INTRAVESICAL, 3 WEEKS
     Route: 043
     Dates: start: 20030212, end: 20030226
  8. INTRON A [Suspect]
     Indication: BLADDER CANCER
     Dosage: 50 IU WEEKLY INTRAVESICAL, 3 WEEKS
     Route: 043
     Dates: start: 20031001, end: 20031015
  9. SOTALOL HCL [Concomitant]
  10. ZYRTEC [Concomitant]
  11. LIPITOR [Concomitant]
  12. MOBIC [Concomitant]

REACTIONS (3)
  - BRONCHITIS [None]
  - STAPHYLOCOCCAL INFECTION [None]
  - UPPER RESPIRATORY TRACT INFECTION [None]
